FAERS Safety Report 8525719-2 (Version None)
Quarter: 2012Q3

REPORT INFORMATION
  Report Type: 
  Country: None (occurrence: None)
  Receive Date: 20120720
  Receipt Date: 20120711
  Transmission Date: 20120928
  Serious: Yes (Other)
  Sender: FDA-Public Use
  Company Number: US-009507513-1206USA04374

PATIENT

DRUGS (2)
  1. SEPAMIT [Concomitant]
  2. PRINIVIL [Suspect]
     Route: 048

REACTIONS (2)
  - POSTERIOR REVERSIBLE ENCEPHALOPATHY SYNDROME [None]
  - ISCHAEMIC STROKE [None]
